FAERS Safety Report 6690379-2 (Version None)
Quarter: 2010Q2

REPORT INFORMATION
  Report Type: 
  Country: None (occurrence: None)
  Receive Date: 20100421
  Receipt Date: 20100408
  Transmission Date: 20101027
  Serious: Yes (Hospitalization)
  Sender: FDA-Public Use
  Company Number: US-ELI_LILLY_AND_COMPANY-US201003005726

PATIENT
  Sex: Male
  Weight: 111 kg

DRUGS (6)
  1. BYETTA [Suspect]
     Indication: TYPE 2 DIABETES MELLITUS
     Dosage: 5 UG, 2/D
     Dates: start: 20060606, end: 20060701
  2. BYETTA [Suspect]
     Dosage: 10 UG, UNK
     Dates: start: 20060706, end: 20100312
  3. SIMVASTATIN [Concomitant]
     Indication: BLOOD CHOLESTEROL INCREASED
     Route: 048
     Dates: start: 20030713
  4. LISINOPRIL [Concomitant]
     Indication: HYPERTENSION
     Route: 048
     Dates: start: 20030701
  5. ACTOS /SCH/ [Concomitant]
     Dosage: 30 MG, UNK
     Dates: start: 20060801, end: 20100312
  6. LANTUS [Concomitant]
     Indication: DIABETES MELLITUS
     Dosage: 20 U, DAILY (1/D)
     Dates: start: 20030701

REACTIONS (3)
  - OFF LABEL USE [None]
  - PANCREATIC LEAK [None]
  - WEIGHT DECREASED [None]
